FAERS Safety Report 6675809-4 (Version None)
Quarter: 2010Q2

REPORT INFORMATION
  Report Type: 
  Country: None (occurrence: None)
  Receive Date: 20100412
  Receipt Date: 20100402
  Transmission Date: 20101027
  Serious: Yes (Hospitalization)
  Sender: FDA-Public Use
  Company Number: JP-ASTRAZENECA-2010SE11360

PATIENT
  Age: 26462 Day
  Sex: Male
  Weight: 45 kg

DRUGS (2)
  1. SYMBICORT [Suspect]
     Indication: CHRONIC OBSTRUCTIVE PULMONARY DISEASE
     Dosage: 160/4.5 UG TWO INHALATIONS TWO TIMES A DAY
     Route: 055
     Dates: start: 20100224, end: 20100313
  2. SALBUTAMOL SULFATE [Concomitant]
     Dosage: AS REQUIRED
     Route: 055
     Dates: start: 20100218, end: 20100309

REACTIONS (1)
  - PNEUMONIA [None]
